FAERS Safety Report 18350798 (Version 2)
Quarter: 2020Q4

REPORT INFORMATION
  Report Type: Spontaneous
  Country: US (occurrence: US)
  Receive Date: 20201006
  Receipt Date: 20201207
  Transmission Date: 20210114
  Serious: No
  Sender: FDA-Public Use
  Company Number: US-NOVOPROD-744587

PATIENT
  Age: 73 Year
  Sex: Female

DRUGS (2)
  1. NOVOLIN 70/30 [Suspect]
     Active Substance: INSULIN HUMAN
     Indication: TYPE 2 DIABETES MELLITUS
     Dosage: UNK
     Route: 058
     Dates: start: 2019
  2. RYBELSUS [Suspect]
     Active Substance: SEMAGLUTIDE
     Indication: TYPE 2 DIABETES MELLITUS
     Dosage: 3 MG, QD
     Route: 048
     Dates: start: 20200714, end: 20200729

REACTIONS (2)
  - Somnolence [Recovered/Resolved]
  - Condition aggravated [Recovered/Resolved]

NARRATIVE: CASE EVENT DATE: 202007
